FAERS Safety Report 5499416-4 (Version None)
Quarter: 2007Q4

REPORT INFORMATION
  Report Type: 
  Country: None (occurrence: None)
  Receive Date: 20071026
  Receipt Date: 20071023
  Transmission Date: 20080405
  Serious: Yes (Disabling)
  Sender: FDA-Public Use
  Company Number: B0492261A

PATIENT
  Age: 73 Year
  Sex: Male

DRUGS (1)
  1. ARIXTRA [Suspect]
     Indication: THROMBOSIS PROPHYLAXIS
     Dosage: 2.5MG PER DAY
     Route: 058
     Dates: start: 20071012, end: 20071017

REACTIONS (1)
  - CEREBRAL INFARCTION [None]
